FAERS Safety Report 8459830-1 (Version None)
Quarter: 2012Q2

REPORT INFORMATION
  Report Type: 
  Country: None (occurrence: None)
  Receive Date: 20120622
  Receipt Date: 20120618
  Transmission Date: 20120825
  Serious: Yes (Other)
  Sender: FDA-Public Use
  Company Number: PHEH2012US008351

PATIENT
  Sex: Female
  Weight: 65.76 kg

DRUGS (1)
  1. GILENYA [Suspect]
     Indication: MULTIPLE SCLEROSIS
     Dosage: 0.5 MG, DAILY
     Route: 048
     Dates: end: 20111001

REACTIONS (5)
  - HEADACHE [None]
  - OPTIC NEURITIS [None]
  - EYE PAIN [None]
  - RASH [None]
  - MULTIPLE SCLEROSIS RELAPSE [None]
